FAERS Safety Report 21894852 (Version 1)
Quarter: 2023Q1

REPORT INFORMATION
  Report Type: Spontaneous
  Country: US (occurrence: US)
  Receive Date: 20230122
  Receipt Date: 20230122
  Transmission Date: 20230418
  Serious: No
  Sender: FDA-Public Use
  Company Number: US-SANOFI-01449171

PATIENT
  Age: 83 Year
  Sex: Male

DRUGS (1)
  1. FLOMAX [Suspect]
     Active Substance: TAMSULOSIN HYDROCHLORIDE
     Indication: Prostate cancer
     Dosage: 0.4 MG, BID

REACTIONS (5)
  - Abnormal faeces [Unknown]
  - Memory impairment [Unknown]
  - Frustration tolerance decreased [Unknown]
  - Weight decreased [Unknown]
  - Muscle atrophy [Unknown]
